FAERS Safety Report 5023653-6 (Version None)
Quarter: 2006Q2

REPORT INFORMATION
  Report Type: 
  Country: None (occurrence: None)
  Receive Date: 20060606
  Receipt Date: 20060522
  Transmission Date: 20061013
  Serious: Yes (Other)
  Sender: FDA-Public Use
  Company Number: HQWYE774203AUG04

PATIENT
  Age: 53 Year
  Sex: Female
  Weight: 63.56 kg

DRUGS (4)
  1. PREMPRO [Suspect]
     Indication: MENOPAUSE
     Dates: start: 19970101, end: 19980101
  2. PREMARIN [Suspect]
     Dates: start: 19960101, end: 19970101
  3. PROVERA [Suspect]
     Dates: start: 19960101, end: 19970101
  4. ZOLOFT [Concomitant]

REACTIONS (8)
  - BREAST CANCER IN SITU [None]
  - BREAST CANCER METASTATIC [None]
  - DEPRESSION [None]
  - HEPATIC CYST [None]
  - NEPHROCALCINOSIS [None]
  - OESTROGEN RECEPTOR ASSAY POSITIVE [None]
  - OSTEOARTHRITIS [None]
  - PROGESTERONE RECEPTOR ASSAY POSITIVE [None]
